FAERS Safety Report 5872830-0 (Version None)
Quarter: 2008Q3

REPORT INFORMATION
  Report Type: 
  Country: None (occurrence: None)
  Receive Date: 20080905
  Receipt Date: 20080826
  Transmission Date: 20090109
  Serious: Yes (Other)
  Sender: FDA-Public Use
  Company Number: BR-PFIZER INC-2008048255

PATIENT
  Sex: Female
  Weight: 91 kg

DRUGS (13)
  1. LIPITOR [Suspect]
     Indication: BLOOD TRIGLYCERIDES INCREASED
     Route: 048
  2. LIPITOR [Suspect]
     Indication: BLOOD CHOLESTEROL INCREASED
  3. RIVOTRIL [Concomitant]
  4. NIMESULIDE [Concomitant]
  5. ALL OTHER THERAPEUTIC PRODUCTS [Concomitant]
  6. SLOW-K [Concomitant]
  7. RANITIDINE [Concomitant]
  8. BENERVA [Concomitant]
  9. VITAMIN B COMPLEX CAP [Concomitant]
  10. MELOXICAM [Concomitant]
  11. CAPTOPRIL [Concomitant]
  12. TROPINAL [Concomitant]
  13. MESACOL [Concomitant]

REACTIONS (11)
  - ARTHRALGIA [None]
  - CHANGE OF BOWEL HABIT [None]
  - CONSTIPATION [None]
  - DIARRHOEA [None]
  - DIZZINESS [None]
  - FAECES HARD [None]
  - HAEMATOCHEZIA [None]
  - MEDICATION ERROR [None]
  - PAIN IN EXTREMITY [None]
  - PAINFUL DEFAECATION [None]
  - SPINAL DISORDER [None]
